FAERS Safety Report 8606035-7 (Version None)
Quarter: 2012Q3

REPORT INFORMATION
  Report Type: 
  Country: None (occurrence: None)
  Receive Date: 20120820
  Receipt Date: 19931121
  Transmission Date: 20120928
  Serious: Yes (Other)
  Sender: FDA-Public Use
  Company Number: US-ROCHE-1098743

PATIENT
  Sex: Male

DRUGS (3)
  1. ACTIVASE [Suspect]
     Indication: PRODUCT USED FOR UNKNOWN INDICATION
  2. HEPARIN [Concomitant]
  3. TRIDIL [Concomitant]

REACTIONS (3)
  - CHEST PAIN [None]
  - VENTRICULAR HYPOKINESIA [None]
  - TRICUSPID VALVE INCOMPETENCE [None]
